FAERS Safety Report 15791045 (Version 1)
Quarter: 2019Q1

REPORT INFORMATION
  Report Type: Spontaneous
  Country: US (occurrence: US)
  Receive Date: 20190104
  Receipt Date: 20190104
  Transmission Date: 20190417
  Serious: Yes (Other)
  Sender: FDA-Public Use
  Company Number: None

PATIENT
  Age: 41 Year
  Sex: Female
  Weight: 59.85 kg

DRUGS (6)
  1. NATURAL VITALITY NATURAL CALM MAGNESIUM SUPPLEMENT [Concomitant]
  2. NUTRA-BIO 100% PURE GLUTAMINE [Concomitant]
  3. GARDEN OF LIFE B-12 ORGANIC SPRAY [Concomitant]
  4. NEW CHAPTER EVERY WOMAN^S ONE DAILY MULTI 40+ VITAMIN [Concomitant]
  5. KIRKLAND SIGNATURE ALLER TEC ALLERGY [Suspect]
     Active Substance: CETIRIZINE HYDROCHLORIDE
     Indication: HYPERSENSITIVITY
     Dosage: ?          QUANTITY:1 TABLET(S);?
     Route: 048
     Dates: start: 20170601, end: 20190101
  6. CODE RAW D3 5000 IU [Concomitant]

REACTIONS (1)
  - Pruritus [None]

NARRATIVE: CASE EVENT DATE: 20190103
